FAERS Safety Report 7533484-0 (Version None)
Quarter: 2011Q2

REPORT INFORMATION
  Report Type: 
  Country: None (occurrence: None)
  Receive Date: 20110608
  Receipt Date: 20060102
  Transmission Date: 20111010
  Serious: Yes (Death, Hospitalization)
  Sender: FDA-Public Use
  Company Number: PHNU2006PL00449

PATIENT
  Sex: Male
  Weight: 79 kg

DRUGS (5)
  1. QUINAPRIL HCL [Concomitant]
  2. ENCORTON [Concomitant]
  3. OMEPRAZOLUM [Concomitant]
  4. PLAVIX [Concomitant]
  5. FLUVASTATIN SODIUM [Suspect]
     Dosage: 80 MG, QD
     Route: 048
     Dates: start: 20050701

REACTIONS (1)
  - MESENTERIC ARTERY EMBOLISM [None]
